FAERS Safety Report 20200999 (Version 3)
Quarter: 2022Q1

REPORT INFORMATION
  Report Type: Report from Study
  Country: US (occurrence: US)
  Receive Date: 20211217
  Receipt Date: 20220216
  Transmission Date: 20220423
  Serious: Yes (Death, Life-Threatening, Hospitalization, Other)
  Sender: FDA-Public Use
  Company Number: US-MACROGENICS-2021000325

PATIENT
  Age: 54 Year
  Sex: Male
  Weight: 82.3 kg

DRUGS (34)
  1. MARGETUXIMAB [Suspect]
     Active Substance: MARGETUXIMAB
     Indication: Gastrooesophageal cancer
     Dosage: 15 MILLIGRAM/KILOGRAM, Q3WEEKS
     Route: 042
     Dates: start: 20201229, end: 20201229
  2. MARGETUXIMAB [Suspect]
     Active Substance: MARGETUXIMAB
     Dosage: 15 MILLIGRAM/KILOGRAM, Q3WEEKS
     Route: 042
     Dates: start: 20210525, end: 20210525
  3. RETIFANLIMAB [Suspect]
     Active Substance: RETIFANLIMAB
     Indication: Gastrooesophageal cancer
     Dosage: 375 MILLIGRAM, Q3WEEKS
     Route: 042
     Dates: start: 20201229, end: 20201229
  4. RETIFANLIMAB [Suspect]
     Active Substance: RETIFANLIMAB
     Dosage: 375 MILLIGRAM, Q3WEEKS
     Route: 042
     Dates: start: 20210525, end: 20210525
  5. ELIQUIS [Concomitant]
     Active Substance: APIXABAN
     Indication: Pulmonary embolism
     Dosage: 5 MILLIGRAM, BID
     Route: 048
     Dates: start: 20201231
  6. BENADRYL [Concomitant]
     Active Substance: DIPHENHYDRAMINE HYDROCHLORIDE
     Indication: Insomnia
     Dosage: 50 MILLIGRAM, PRN
     Route: 048
     Dates: start: 20100101
  7. HYDROXYZINE HYDROCHLORIDE [Concomitant]
     Active Substance: HYDROXYZINE HYDROCHLORIDE
     Indication: Anxiety
     Dosage: 50 MILLIGRAM, Q6HR
     Route: 048
     Dates: start: 20210111
  8. HYDROXYZINE HYDROCHLORIDE [Concomitant]
     Active Substance: HYDROXYZINE HYDROCHLORIDE
     Dosage: 50 MILLIGRAM, PRN
     Route: 048
     Dates: start: 20210914
  9. VITAMIN D3 [Concomitant]
     Active Substance: CHOLECALCIFEROL
     Indication: Vitamin D deficiency
     Dosage: 5000 UNITS, QD
     Route: 048
     Dates: start: 20210201
  10. METHOCARBAMOL [Concomitant]
     Active Substance: METHOCARBAMOL
     Indication: Cancer pain
     Dosage: 750 MILLIGRAM, TID
     Route: 048
     Dates: start: 20201105
  11. METHOCARBAMOL [Concomitant]
     Active Substance: METHOCARBAMOL
     Indication: Muscle spasms
     Dosage: 750 MILLIGRAM, TID
     Route: 048
     Dates: start: 20210305
  12. LEXAPRO [Concomitant]
     Active Substance: ESCITALOPRAM OXALATE
     Indication: Depression
     Dosage: 1 TABLET DOSING UNIT, QD
     Route: 048
     Dates: start: 20170101
  13. OLANZAPINE [Concomitant]
     Active Substance: OLANZAPINE
     Indication: Nausea
     Dosage: 5 MILLIGRAM, QD
     Route: 048
     Dates: start: 20210407
  14. ZOFRAN [Concomitant]
     Active Substance: ONDANSETRON HYDROCHLORIDE
     Indication: Nausea
     Dosage: 8 MILLIGRAM, Q8HR
     Route: 048
     Dates: start: 20191212
  15. ZOFRAN [Concomitant]
     Active Substance: ONDANSETRON HYDROCHLORIDE
     Indication: Vomiting
  16. GABAPENTIN [Concomitant]
     Active Substance: GABAPENTIN
     Indication: Pain
     Dosage: 300 MILLIGRAM, BID
     Route: 048
     Dates: start: 20210226
  17. PROMETHAZINE [Concomitant]
     Active Substance: PROMETHAZINE HYDROCHLORIDE
     Indication: Nausea
     Dosage: 25 MILLIGRAM, Q6HR
     Route: 048
     Dates: start: 20210504
  18. PROMETHAZINE [Concomitant]
     Active Substance: PROMETHAZINE HYDROCHLORIDE
     Indication: Vomiting
  19. CYMBALTA [Concomitant]
     Active Substance: DULOXETINE HYDROCHLORIDE
     Indication: Pain
     Dosage: 20 MILLIGRAM, BID
     Route: 048
     Dates: start: 20210507
  20. OMEPRAZOLE [Concomitant]
     Active Substance: OMEPRAZOLE
     Indication: Prophylaxis
     Dosage: 40 MILLIGRAM, QD
     Route: 048
     Dates: start: 20210519
  21. BACTRIM [Concomitant]
     Active Substance: SULFAMETHOXAZOLE\TRIMETHOPRIM
     Indication: Prophylaxis
     Dosage: 800 MILLIGRAM, QD
     Route: 048
     Dates: start: 20210513
  22. TEMAZEPAM [Concomitant]
     Active Substance: TEMAZEPAM
     Indication: Insomnia
     Dosage: 30 MILLIGRAM, QD
     Route: 048
     Dates: start: 20201001
  23. RESTORIL [Concomitant]
     Active Substance: TEMAZEPAM
     Indication: Insomnia
     Dosage: 30 MILLIGRAM, QD
     Route: 048
     Dates: start: 20210611
  24. ALBUTEROL SULFATE [Concomitant]
     Active Substance: ALBUTEROL SULFATE
     Indication: Pneumonitis
     Dosage: 2 PUFF DOSING UNIT, Q4HR
     Dates: start: 20210617
  25. NYSTATIN [Concomitant]
     Active Substance: NYSTATIN
     Indication: Candida infection
     Dosage: 5 MILLILITER, QID
     Route: 048
     Dates: start: 20210617
  26. PREDNISONE [Concomitant]
     Active Substance: PREDNISONE
     Indication: Pneumonitis
     Dosage: 70 MILLIGRAM, QD
     Route: 048
     Dates: start: 20210624
  27. PREDNISONE [Concomitant]
     Active Substance: PREDNISONE
     Dosage: 80 MILLIGRAM, BID
     Route: 048
     Dates: start: 20210924
  28. PREDNISONE [Concomitant]
     Active Substance: PREDNISONE
     Dosage: 40 MILLIGRAM, BID
     Route: 048
     Dates: start: 20211006
  29. POTASSIUM [Concomitant]
     Active Substance: POTASSIUM
     Indication: Hypokalaemia
     Dosage: 10 MILLIGRAM, QD
     Route: 048
     Dates: start: 20210805
  30. POTASSIUM [Concomitant]
     Active Substance: POTASSIUM
     Dosage: 20 MILLIGRAM, BID
     Route: 048
     Dates: start: 20210812
  31. MS CONTIN [Concomitant]
     Active Substance: MORPHINE SULFATE
     Indication: Cancer pain
     Dosage: 30 MILLIGRAM, TID
     Route: 048
     Dates: start: 20201211
  32. FLUCONAZOLE [Concomitant]
     Active Substance: FLUCONAZOLE
     Indication: Oral candidiasis
     Dosage: 200 MILLIGRAM, QD
     Route: 048
     Dates: start: 20210928
  33. MORPHINE SULFATE [Concomitant]
     Active Substance: MORPHINE SULFATE
     Indication: Cancer pain
     Dosage: 15 MILLIGRAM, Q4HR
     Route: 048
     Dates: start: 20201211
  34. INFLIXIMAB [Concomitant]
     Active Substance: INFLIXIMAB
     Indication: Pneumonitis
     Dosage: 400 MILLIGRAM, QD
     Route: 042
     Dates: start: 20211013

REACTIONS (2)
  - Respiratory failure [Fatal]
  - Metabolic acidosis [Not Recovered/Not Resolved]

NARRATIVE: CASE EVENT DATE: 20211214
